FAERS Safety Report 18492379 (Version 4)
Quarter: 2021Q1

REPORT INFORMATION
  Report Type: Spontaneous
  Country: US (occurrence: US)
  Receive Date: 20201111
  Receipt Date: 20210222
  Transmission Date: 20210419
  Serious: Yes (Hospitalization, Other)
  Sender: FDA-Public Use
  Company Number: US-TAKEDA-2020TUS045254

PATIENT
  Sex: Female
  Weight: 66.7 kg

DRUGS (1)
  1. MOTEGRITY [Suspect]
     Active Substance: PRUCALOPRIDE SUCCINATE
     Indication: IMPAIRED GASTRIC EMPTYING
     Route: 065

REACTIONS (5)
  - Abdominal adhesions [Unknown]
  - Hypophagia [Unknown]
  - Nausea [Unknown]
  - Product use in unapproved indication [Unknown]
  - Vomiting [Unknown]
